FAERS Safety Report 9969941 (Version 1)
Quarter: 2014Q1

REPORT INFORMATION
  Report Type: Spontaneous
  Country: US (occurrence: US)
  Receive Date: 20140306
  Receipt Date: 20140306
  Transmission Date: 20141002
  Serious: No
  Sender: FDA-Public Use
  Company Number: US-SA-2013SA113887

PATIENT
  Sex: Female

DRUGS (2)
  1. GAVISCON [Suspect]
     Indication: GASTROOESOPHAGEAL REFLUX DISEASE
     Route: 065
  2. ALUMINIUM HYDROXIDE/MAGNESIUM TRISILICATE [Suspect]
     Indication: GASTROOESOPHAGEAL REFLUX DISEASE
     Route: 065

REACTIONS (3)
  - Malaise [Unknown]
  - Nonspecific reaction [Unknown]
  - Drug administration error [Unknown]
